FAERS Safety Report 4721683-2 (Version None)
Quarter: 2005Q3

REPORT INFORMATION
  Report Type: 
  Country: None (occurrence: None)
  Receive Date: 20050721
  Receipt Date: 20050222
  Transmission Date: 20060218
  Serious: No
  Sender: FDA-Public Use
  Company Number: US-BRISTOL-MYERS SQUIBB COMPANY-12872875

PATIENT
  Sex: Female

DRUGS (3)
  1. COUMADIN [Suspect]
  2. COZAAR [Concomitant]
  3. MAXZIDE [Concomitant]

REACTIONS (9)
  - DYSPNOEA [None]
  - FURUNCLE [None]
  - HAEMOPTYSIS [None]
  - HAEMORRHAGE [None]
  - HEADACHE [None]
  - PAIN IN EXTREMITY [None]
  - PRURITUS [None]
  - SKIN DISORDER [None]
  - VEIN DISORDER [None]
